FAERS Safety Report 19584598 (Version 1)
Quarter: 2021Q3

REPORT INFORMATION
  Report Type: Spontaneous
  Country: US (occurrence: US)
  Receive Date: 20210720
  Receipt Date: 20210720
  Transmission Date: 20211014
  Serious: Yes (Other)
  Sender: FDA-Public Use
  Company Number: US-PFIZER INC-2021855533

PATIENT
  Age: 72 Year
  Sex: Female

DRUGS (1)
  1. XELJANZ XR [Suspect]
     Active Substance: TOFACITINIB CITRATE
     Dosage: 11 MG, 1X/DAY
     Route: 048

REACTIONS (7)
  - Gastroenteritis bacterial [Unknown]
  - Abdominal discomfort [Unknown]
  - Emphysema [Unknown]
  - Diarrhoea [Unknown]
  - Cough [Unknown]
  - Dry mouth [Unknown]
  - Lung disorder [Unknown]
